FAERS Safety Report 4871133-0 (Version None)
Quarter: 2005Q4

REPORT INFORMATION
  Report Type: 
  Country: None (occurrence: None)
  Receive Date: 20051229
  Receipt Date: 20051215
  Transmission Date: 20060501
  Serious: Yes (Hospitalization)
  Sender: FDA-Public Use
  Company Number: FR200511002421

PATIENT
  Age: 70 Year
  Sex: Male
  Weight: 61 kg

DRUGS (15)
  1. HUMAN INSULIN (RDNA ORIGIN) (HUMAN INSULIN (RDNA ORIGIN) UNKNOWN FORMU [Suspect]
     Indication: DIABETES MELLITUS
  2. BACTRIM (SULFAMETHOXAZOLE, TRIMETHOPRIM) AMPOULE [Concomitant]
  3. CALCIPARINE [Concomitant]
  4. TIENAM (CILASTATIN, CILASTATIN SODIUM, IMIPENEM) [Concomitant]
  5. MIDAZOLAM HCL [Concomitant]
  6. FENTANYL CITRATE [Concomitant]
  7. SOLUPRED (PREDNISOLONE SODIUM SULFOBENZOATE) [Concomitant]
  8. NEORECORMON (EPOETIN BETA) [Concomitant]
  9. ESMERON (ROCURONIUM BROMIDE) [Concomitant]
  10. TRACRIUM [Concomitant]
  11. DIGOXIN [Concomitant]
  12. CORDARONE [Concomitant]
  13. AMIKIN [Concomitant]
  14. HYPNOMIDATE [Concomitant]
  15. ROVALCYTE (VALGANCICLOVIR HYDROCHLORIDE) [Concomitant]

REACTIONS (9)
  - ACUTE RESPIRATORY DISTRESS SYNDROME [None]
  - ACUTE RESPIRATORY FAILURE [None]
  - CREATININE RENAL CLEARANCE DECREASED [None]
  - CYTOMEGALOVIRUS INFECTION [None]
  - ESCHERICHIA SEPSIS [None]
  - NORMOCHROMIC NORMOCYTIC ANAEMIA [None]
  - PANCYTOPENIA [None]
  - PNEUMOCYSTIS JIROVECI PNEUMONIA [None]
  - RENAL TRANSPLANT [None]
